FAERS Safety Report 4439523-8 (Version None)
Quarter: 2004Q3

REPORT INFORMATION
  Report Type: 
  Country: None (occurrence: None)
  Receive Date: 20040830
  Receipt Date: 20040813
  Transmission Date: 20050211
  Serious: Yes (Death, Life-Threatening, Hospitalization)
  Sender: FDA-Public Use
  Company Number: 04P-056-0270760-00

PATIENT
  Age: 62 Year
  Sex: Male

DRUGS (9)
  1. TRICOR [Suspect]
     Indication: HYPERCHOLESTEROLAEMIA
     Dosage: 1 DOSAGE FORMS, 1 IN 1 D, ORAL
     Route: 048
     Dates: end: 20030812
  2. DIGOXIN [Concomitant]
  3. FLUINDIONE [Concomitant]
  4. FLECAINIDE ACETATE [Concomitant]
  5. ZESTORETIC ^HAESSLE^ (HYDROCHLOROTHIAZIDE) [Concomitant]
  6. LACIDIPINE [Concomitant]
  7. GLIBENCLAMIDE [Concomitant]
  8. METFORMIN EMBONATE [Concomitant]
  9. TOCOPHERYL ACETATE [Concomitant]

REACTIONS (11)
  - CARDIO-RESPIRATORY ARREST [None]
  - CEREBRAL DISORDER [None]
  - CONFUSIONAL STATE [None]
  - DEHYDRATION [None]
  - HEPATIC FAILURE [None]
  - HYPERTHERMIA MALIGNANT [None]
  - MULTI-ORGAN FAILURE [None]
  - RENAL FAILURE [None]
  - RESPIRATORY DISTRESS [None]
  - RHABDOMYOLYSIS [None]
  - VENTRICULAR TACHYCARDIA [None]
